FAERS Safety Report 8683733 (Version 3)
Quarter: 2014Q3

REPORT INFORMATION
  Report Type: Report from Study
  Country: RO (occurrence: RO)
  Receive Date: 20120726
  Receipt Date: 20140723
  Transmission Date: 20150326
  Serious: Yes (Death, Other)
  Sender: FDA-Public Use
  Company Number: PHHY2012RO063514

PATIENT
  Age: 51 Year
  Sex: Male

DRUGS (1)
  1. TASIGNA [Suspect]
     Active Substance: NILOTINIB
     Indication: CHRONIC MYELOID LEUKAEMIA
     Dosage: 2 DF, PER DAY
     Route: 048
     Dates: start: 20090306

REACTIONS (3)
  - Cerebral haemorrhage [Fatal]
  - Skin haemorrhage [Unknown]
  - Thrombocytopenia [Unknown]
